FAERS Safety Report 7730821-9 (Version None)
Quarter: 2011Q3

REPORT INFORMATION
  Report Type: 
  Country: None (occurrence: None)
  Receive Date: 20110906
  Receipt Date: 20110822
  Transmission Date: 20111222
  Serious: Yes (Other)
  Sender: FDA-Public Use
  Company Number: FR-CELGENEUS-056-20785-10090855

PATIENT

DRUGS (4)
  1. DEXAMETHASONE [Concomitant]
     Dosage: 40 MILLIGRAM
     Route: 065
  2. DEXAMETHASONE [Concomitant]
     Indication: MULTIPLE MYELOMA
     Dosage: 40 MILLIGRAM
     Route: 065
  3. THALIDOMIDE [Suspect]
     Indication: MULTIPLE MYELOMA
     Dosage: 100 MILLIGRAM
     Route: 048
  4. BORTEZOMIB [Concomitant]
     Indication: MULTIPLE MYELOMA
     Dosage: 1 MILLIGRAM/SQ. METER
     Route: 041

REACTIONS (10)
  - FATIGUE [None]
  - INFECTION [None]
  - HERPES ZOSTER [None]
  - THROMBOSIS [None]
  - NEUROPATHY PERIPHERAL [None]
  - CARDIAC DISORDER [None]
  - ANAEMIA [None]
  - MULTIPLE MYELOMA [None]
  - GASTROINTESTINAL DISORDER [None]
  - THROMBOCYTOPENIA [None]
